FAERS Safety Report 5864202-X (Version None)
Quarter: 2008Q3

REPORT INFORMATION
  Report Type: 
  Country: None (occurrence: None)
  Receive Date: 20080829
  Receipt Date: 20080818
  Transmission Date: 20090109
  Serious: Yes (Death, Hospitalization)
  Sender: FDA-Public Use
  Company Number: US-ROCHE-582167

PATIENT
  Age: 11 Month
  Sex: Male

DRUGS (2)
  1. MEFLOQUINE HYDROCHLORIDE [Suspect]
     Indication: MALARIA PROPHYLAXIS
     Dosage: DRUG NAME REPORTED AS MEFLOQUINE
     Route: 065
  2. IMMUNOGLOBULIN INJECTABLE [Suspect]
     Dosage: DRUG NAME REPORTED AS IMMUNOGLOBULIN
     Route: 030

REACTIONS (5)
  - BRONCHOPULMONARY ASPERGILLOSIS [None]
  - CHRONIC GRANULOMATOUS DISEASE [None]
  - MULTI-ORGAN FAILURE [None]
  - PYREXIA [None]
  - SEPSIS [None]
